APPROVED DRUG PRODUCT: IMPAVIDO
Active Ingredient: MILTEFOSINE
Strength: 50MG
Dosage Form/Route: CAPSULE;ORAL
Application: N204684 | Product #001
Applicant: KNIGHT THERAPEUTICS USA INC
Approved: Mar 19, 2014 | RLD: Yes | RS: Yes | Type: RX